FAERS Safety Report 21863000 (Version 1)
Quarter: 2023Q1

REPORT INFORMATION
  Report Type: Report from Study
  Country: CH (occurrence: CH)
  Receive Date: 20230114
  Receipt Date: 20230114
  Transmission Date: 20230418
  Serious: Yes (Hospitalization)
  Sender: FDA-Public Use
  Company Number: CH-002147023-NVSC2019CH003148

PATIENT
  Sex: Female

DRUGS (6)
  1. ERENUMAB [Suspect]
     Active Substance: ERENUMAB
     Indication: Migraine
     Dosage: 70 MILLIGRAM
     Route: 065
     Dates: start: 20190528
  2. ERENUMAB [Suspect]
     Active Substance: ERENUMAB
     Dosage: 140 MILLIGRAM
     Route: 065
  3. OXAZEPAM [Concomitant]
     Active Substance: OXAZEPAM
     Indication: Sleep disorder
     Dosage: 15 MG
     Route: 048
     Dates: start: 2013
  4. OXAZEPAM [Concomitant]
     Active Substance: OXAZEPAM
     Indication: Sleep disorder
  5. ZOMIG [Concomitant]
     Active Substance: ZOLMITRIPTAN
     Indication: Headache
     Dosage: 5 MG
     Route: 045
     Dates: start: 201910
  6. Transipeg [Concomitant]
     Indication: Product used for unknown indication
     Dosage: UNK
     Route: 065

REACTIONS (4)
  - Nephrolithiasis [Recovered/Resolved]
  - Arthralgia [Recovering/Resolving]
  - Constipation [Recovered/Resolved]
  - Faeces hard [Unknown]

NARRATIVE: CASE EVENT DATE: 20190101
